FAERS Safety Report 7520102-0 (Version None)
Quarter: 2011Q2

REPORT INFORMATION
  Report Type: 
  Country: None (occurrence: None)
  Receive Date: 20110602
  Receipt Date: 20110520
  Transmission Date: 20111010
  Serious: Yes (Other)
  Sender: FDA-Public Use
  Company Number: US-CELGENEUS-163-21880-11041806

PATIENT
  Sex: Female
  Weight: 56.75 kg

DRUGS (12)
  1. DECADRON [Concomitant]
     Dosage: 40 MILLIGRAM
     Route: 065
     Dates: start: 20090912
  2. REVLIMID [Suspect]
     Dosage: 25 MILLIGRAM
     Route: 048
     Dates: start: 20101126, end: 20110222
  3. DIGOXIN [Concomitant]
     Dosage: .125 MILLIGRAM
     Route: 065
  4. REVLIMID [Suspect]
     Dosage: 10 MILLIGRAM
     Route: 048
     Dates: start: 20100614
  5. REVLIMID [Suspect]
     Indication: MULTIPLE MYELOMA
     Dosage: 10 MILLIGRAM
     Route: 048
     Dates: start: 20090910
  6. METOPROLOL TARTRATE [Concomitant]
     Dosage: 12.5 MILLIGRAM
     Route: 065
  7. REVLIMID [Suspect]
     Dosage: 25 MILLIGRAM
     Route: 048
     Dates: start: 20091014, end: 20100421
  8. VELCADE [Concomitant]
     Route: 065
     Dates: start: 20110117
  9. TYLENOL (CAPLET) [Concomitant]
     Route: 065
  10. DECADRON [Concomitant]
     Dosage: 20 MILLIGRAM
     Route: 065
  11. BACTRIM [Concomitant]
     Indication: PROPHYLAXIS
     Route: 065
     Dates: start: 20090912
  12. ASPIRIN [Concomitant]
     Dosage: 81 MILLIGRAM
     Route: 065
     Dates: start: 20090912

REACTIONS (1)
  - PROTHROMBIN LEVEL ABNORMAL [None]
